FAERS Safety Report 13824907 (Version 1)
Quarter: 2017Q3

REPORT INFORMATION
  Report Type: Spontaneous
  Country: US (occurrence: US)
  Receive Date: 20170802
  Receipt Date: 20170802
  Transmission Date: 20171127
  Serious: Yes (Other)
  Sender: FDA-Public Use
  Company Number: PHHY2017US111589

PATIENT
  Age: 7 Year
  Sex: Male

DRUGS (2)
  1. VORICONAZOLE. [Suspect]
     Active Substance: VORICONAZOLE
     Indication: MENINGITIS
     Dosage: 18 MG/KG, QD
     Route: 048
  2. VORICONAZOLE. [Suspect]
     Active Substance: VORICONAZOLE
     Indication: BLASTOMYCOSIS

REACTIONS (3)
  - Rash vesicular [Unknown]
  - Fluoride increased [Not Recovered/Not Resolved]
  - Photosensitivity reaction [Unknown]
